FAERS Safety Report 4582740-7 (Version None)
Quarter: 2005Q1

REPORT INFORMATION
  Report Type: 
  Country: None (occurrence: None)
  Receive Date: 20050127
  Receipt Date: 20040413
  Transmission Date: 20050727
  Serious: Yes (Other)
  Sender: FDA-Public Use
  Company Number: 04-04-0538

PATIENT
  Age: 61 Year
  Sex: Female

DRUGS (2)
  1. HYDROCHLOROTHIAZIDE TAB [Suspect]
     Indication: HYPERTENSION
     Dosage: 25MG QD ORAL
     Route: 048
     Dates: start: 20000211
  2. ATENOLOL [Concomitant]

REACTIONS (1)
  - TACHYCARDIA [None]
